FAERS Safety Report 5026544-X (Version None)
Quarter: 2006Q2

REPORT INFORMATION
  Report Type: 
  Country: None (occurrence: None)
  Receive Date: 20060615
  Receipt Date: 20060530
  Transmission Date: 20061013
  Serious: Yes (Disabling)
  Sender: FDA-Public Use
  Company Number: DE-AVENTIS-200611600DE

PATIENT
  Age: 36 Year
  Sex: Female
  Weight: 89 kg

DRUGS (4)
  1. CLEXANE [Suspect]
     Indication: COAGULOPATHY
     Route: 058
     Dates: start: 20050401, end: 20051125
  2. CLEXANE [Suspect]
     Route: 058
     Dates: start: 20051126, end: 20051201
  3. LIQUAEMIN INJ [Concomitant]
     Indication: COAGULOPATHY
     Route: 058
     Dates: start: 20051126
  4. NYSTATIN [Concomitant]
     Indication: ORAL CANDIDIASIS

REACTIONS (4)
  - DRUG EXPOSURE DURING PREGNANCY [None]
  - ORAL CANDIDIASIS [None]
  - OSTEOPOROSIS [None]
  - THORACIC VERTEBRAL FRACTURE [None]
